FAERS Safety Report 9384759 (Version 1)
Quarter: 2013Q3

REPORT INFORMATION
  Report Type: Spontaneous
  Country: US (occurrence: US)
  Receive Date: 20130705
  Receipt Date: 20130705
  Transmission Date: 20140515
  Serious: No
  Sender: FDA-Public Use
  Company Number: US-ASTRAZENECA-2013SE46613

PATIENT
  Age: 80 Year
  Sex: Female
  Weight: 74.4 kg

DRUGS (9)
  1. BRILINTA [Suspect]
     Route: 048
     Dates: start: 20130326, end: 20130418
  2. METOPROLOL TARTRATE [Concomitant]
  3. ATORVASTATIN [Concomitant]
  4. ASPIRIN [Concomitant]
  5. CALCIUM [Concomitant]
  6. NORVASC [Concomitant]
  7. ADVAIR [Concomitant]
     Dosage: 2 PUFFS Q12H
     Route: 055
  8. NORCO [Concomitant]
     Dosage: 5/325 MG PRN
  9. LORAZEPAM [Concomitant]

REACTIONS (5)
  - Cough [Recovering/Resolving]
  - Oedema peripheral [Unknown]
  - Feeling abnormal [Unknown]
  - Oedema peripheral [Unknown]
  - Dyspnoea [Unknown]
